FAERS Safety Report 4464613-3 (Version None)
Quarter: 2004Q3

REPORT INFORMATION
  Report Type: 
  Country: None (occurrence: None)
  Receive Date: 20040927
  Receipt Date: 20040913
  Transmission Date: 20050211
  Serious: Yes (Hospitalization, Other)
  Sender: FDA-Public Use
  Company Number: 2004052091

PATIENT
  Age: 74 Year
  Sex: Male

DRUGS (8)
  1. LOPID [Suspect]
     Indication: BLOOD TRIGLYCERIDES INCREASED
     Dosage: 900 MG (900 MG, 1 IN 1 D), ORAL
     Route: 048
     Dates: start: 20031201, end: 20040101
  2. CIMETIDINE [Concomitant]
  3. ENALAPRIL MALEATE [Concomitant]
  4. HYDROCHLOROTHIAZIDE [Concomitant]
  5. ALL OTHER THERAPEUTIC PRODUCTS (ALL OTHER THERAPEUTIC PRODUCTS) [Concomitant]
  6. METILDIGOXIN (METILDIGOXIN) [Concomitant]
  7. SIMVASTATIN [Concomitant]
  8. LEVOFLOXACIN [Concomitant]

REACTIONS (16)
  - AMNESIA [None]
  - ASTHENIA [None]
  - BLINDNESS [None]
  - DRUG INEFFECTIVE [None]
  - DYSPNOEA [None]
  - ELECTROMYOGRAM ABNORMAL [None]
  - METASTASES TO LIVER [None]
  - MOVEMENT DISORDER [None]
  - MUSCLE ATROPHY [None]
  - NERVE INJURY [None]
  - NERVOUS SYSTEM DISORDER [None]
  - NEURALGIA [None]
  - PAIN [None]
  - RESPIRATORY FAILURE [None]
  - TREATMENT NONCOMPLIANCE [None]
  - VERTIGO [None]
